FAERS Safety Report 11155607 (Version 1)
Quarter: 2015Q2

REPORT INFORMATION
  Report Type: Spontaneous
  Country: US (occurrence: None)
  Receive Date: 20150601
  Receipt Date: 20150601
  Transmission Date: 20150821
  Serious: Yes (Hospitalization)
  Sender: FDA-Public Use
  Company Number: None

PATIENT
  Age: 66 Year
  Sex: Male
  Weight: 61.5 kg

DRUGS (3)
  1. CISPLATIN. [Suspect]
     Active Substance: CISPLATIN
     Dates: start: 20150526
  2. ASPIRIN. [Concomitant]
     Active Substance: ASPIRIN
  3. FAMOTIDINE. [Concomitant]
     Active Substance: FAMOTIDINE

REACTIONS (3)
  - Stoma site extravasation [None]
  - Epigastric discomfort [None]
  - Stoma complication [None]

NARRATIVE: CASE EVENT DATE: 20150527
